FAERS Safety Report 8467318-7 (Version None)
Quarter: 2012Q2

REPORT INFORMATION
  Report Type: 
  Country: None (occurrence: None)
  Receive Date: 20120626
  Receipt Date: 20120613
  Transmission Date: 20120825
  Serious: No
  Sender: FDA-Public Use
  Company Number: US-ASTRAZENECA-2011SE40316

PATIENT
  Age: 63 Year
  Sex: Female

DRUGS (2)
  1. PREDNISONE TAB [Concomitant]
  2. NEXIUM [Suspect]
     Route: 048

REACTIONS (8)
  - HYPERTENSION [None]
  - GASTROOESOPHAGEAL REFLUX DISEASE [None]
  - RHEUMATOID ARTHRITIS [None]
  - OFF LABEL USE [None]
  - DIABETES MELLITUS [None]
  - MALAISE [None]
  - ABDOMINAL PAIN UPPER [None]
  - OSTEOPOROSIS [None]
